FAERS Safety Report 12221476 (Version 1)
Quarter: 2016Q1

REPORT INFORMATION
  Report Type: Report from Study
  Country: BR (occurrence: BR)
  Receive Date: 20160330
  Receipt Date: 20160330
  Transmission Date: 20160526
  Serious: Yes (Other)
  Sender: FDA-Public Use
  Company Number: PHHY2013BR056286

PATIENT
  Sex: Male
  Weight: 63 kg

DRUGS (6)
  1. SANDOSTATIN LAR DEPOT [Suspect]
     Active Substance: OCTREOTIDE ACETATE
     Indication: ACROMEGALY
     Dosage: 10 MG, QMO/EVERY 28 DAYS
     Route: 030
     Dates: start: 2008
  2. LEVOTHYROXINE. [Concomitant]
     Active Substance: LEVOTHYROXINE
     Indication: HORMONE REPLACEMENT THERAPY
     Dosage: 1 DF, DAILY
     Route: 048
     Dates: start: 2007
  3. CABERGOLINE. [Concomitant]
     Active Substance: CABERGOLINE
     Indication: BLOOD GROWTH HORMONE INCREASED
     Dosage: 1 DF, SUNDAY, MONDAY, WEDNESDAY AND FRIDAY
     Route: 048
     Dates: start: 2010
  4. SANDOSTATIN LAR DEPOT [Suspect]
     Active Substance: OCTREOTIDE ACETATE
     Dosage: 20 MG, QMO/EVERY 28 DAYS
     Route: 030
  5. PREDNISONE. [Concomitant]
     Active Substance: PREDNISONE
     Indication: INFECTION
     Dosage: 1 DF, DAILY
     Route: 048
     Dates: start: 2007
  6. SANDOSTATIN LAR DEPOT [Suspect]
     Active Substance: OCTREOTIDE ACETATE
     Dosage: 30 MG, QMO/EVERY 28 DAYS
     Route: 030

REACTIONS (4)
  - Optic nerve compression [Unknown]
  - Blood growth hormone increased [Unknown]
  - Dizziness [Recovered/Resolved]
  - Insulin-like growth factor increased [Unknown]
